FAERS Safety Report 8029994-2 (Version None)
Quarter: 2012Q1

REPORT INFORMATION
  Report Type: 
  Country: None (occurrence: None)
  Receive Date: 20120106
  Receipt Date: 20120106
  Transmission Date: 20120608
  Serious: Yes (Life-Threatening, Hospitalization)
  Sender: FDA-Public Use
  Company Number: None

PATIENT
  Age: 65 Year
  Sex: Male
  Weight: 90.1 kg

DRUGS (2)
  1. LISINOPRIL [Suspect]
     Indication: PHARYNGEAL OEDEMA
     Dosage: 40 MG EVERY DAY PO
     Route: 048
     Dates: start: 20030303, end: 20111027
  2. LISINOPRIL [Suspect]
     Indication: OBSTRUCTIVE AIRWAYS DISORDER
     Dosage: 40 MG EVERY DAY PO
     Route: 048
     Dates: start: 20030303, end: 20111027

REACTIONS (1)
  - ANGIOEDEMA [None]
